APPROVED DRUG PRODUCT: MEMBRANEBLUE
Active Ingredient: TRYPAN BLUE
Strength: 0.15%
Dosage Form/Route: SOLUTION;OPHTHALMIC
Application: N022278 | Product #001
Applicant: DORC INTERNATIONAL BV
Approved: Feb 20, 2009 | RLD: Yes | RS: No | Type: DISCN